FAERS Safety Report 6137424-0 (Version None)
Quarter: 2009Q1

REPORT INFORMATION
  Report Type: 
  Country: None (occurrence: None)
  Receive Date: 20090326
  Receipt Date: 20090316
  Transmission Date: 20090719
  Serious: Yes (Life-Threatening)
  Sender: FDA-Public Use
  Company Number: 09US000242

PATIENT
  Age: 39 Year
  Sex: Male

DRUGS (3)
  1. GEMFIBROZIL [Suspect]
     Indication: HYPERTRIGLYCERIDAEMIA
     Dosage: 600 MG, SINGLE, ORAL, 300 MG, SINGLE, ORAL
     Route: 048
  2. TIAGABINE HCL [Suspect]
     Indication: CONVULSION
     Dosage: 16 MG, TID, ORAL
     Route: 048
  3. CARBAMAZEPINE [Concomitant]

REACTIONS (7)
  - ASTHENIA [None]
  - CONFUSIONAL STATE [None]
  - CONVULSION [None]
  - DIZZINESS [None]
  - DRUG INTERACTION [None]
  - DRUG TOXICITY [None]
  - LOSS OF CONSCIOUSNESS [None]
